FAERS Safety Report 21489924 (Version 1)
Quarter: 2022Q4

REPORT INFORMATION
  Report Type: Spontaneous
  Country: US (occurrence: US)
  Receive Date: 20221021
  Receipt Date: 20221021
  Transmission Date: 20230113
  Serious: No
  Sender: FDA-Public Use
  Company Number: US-CELLTRION INC.-2022US013799

PATIENT

DRUGS (5)
  1. INFLIXIMAB [Suspect]
     Active Substance: INFLIXIMAB
     Indication: Chronic recurrent multifocal osteomyelitis
  2. PAMIDRONATE [Suspect]
     Active Substance: PAMIDRONATE DISODIUM
     Indication: Chronic recurrent multifocal osteomyelitis
  3. GOLIMUMAB [Suspect]
     Active Substance: GOLIMUMAB
     Indication: Chronic recurrent multifocal osteomyelitis
  4. ADALIMUMAB [Suspect]
     Active Substance: ADALIMUMAB
     Indication: Crohn^s disease
  5. METHOTREXATE [Suspect]
     Active Substance: METHOTREXATE
     Indication: Crohn^s disease

REACTIONS (5)
  - Skin lesion [Unknown]
  - Condition aggravated [Unknown]
  - Arthralgia [Unknown]
  - Rash pustular [Unknown]
  - Off label use [Unknown]
